FAERS Safety Report 5819338-6 (Version None)
Quarter: 2008Q3

REPORT INFORMATION
  Report Type: 
  Country: None (occurrence: None)
  Receive Date: 20080718
  Receipt Date: 20080703
  Transmission Date: 20090109
  Serious: Yes (Other)
  Sender: FDA-Public Use
  Company Number: 1000000019

PATIENT
  Age: 46 Year
  Sex: Male

DRUGS (1)
  1. CITALOPRAM (CITALOPRAM HYDROBROMIDE) (TABLETS) [Suspect]
     Indication: DEPRESSION
     Dosage: 20 MG (20 MG, 1 IN 1 D), ORAL
     Route: 048
     Dates: start: 20080501, end: 20080528

REACTIONS (3)
  - BRADYPHRENIA [None]
  - DRUG WITHDRAWAL SYNDROME [None]
  - PARAESTHESIA [None]
